FAERS Safety Report 4752250-2 (Version None)
Quarter: 2005Q3

REPORT INFORMATION
  Report Type: 
  Country: None (occurrence: None)
  Receive Date: 20050822
  Receipt Date: 20050822
  Transmission Date: 20060218
  Serious: Yes (Other)
  Sender: FDA-Public Use
  Company Number: None

PATIENT
  Sex: Male
  Weight: 65.3 kg

DRUGS (16)
  1. FLUOROURACIL [Suspect]
     Indication: NEOPLASM
     Dosage: SEE IMAGE
     Dates: start: 20050103, end: 20050307
  2. FLUOROURACIL [Suspect]
     Indication: NEOPLASM
     Dosage: SEE IMAGE
     Dates: start: 20050809
  3. CISPLATIN [Suspect]
     Dosage: SEE IMAGE
     Dates: start: 20050103, end: 20050816
  4. XRT RADIATION [Suspect]
     Dosage: SEE IMAGE
  5. FLUOROURACIL [Suspect]
     Dosage: SEE IMAGE
  6. CISPLATIN [Suspect]
     Dosage: SEE IMAGE
  7. XRT RADIATION [Suspect]
     Dosage: SEE IMAGE
  8. GEMCITABINE [Suspect]
     Dosage: SEE IMAGE
     Dates: start: 20050531, end: 20050816
  9. PACLITAXEL [Suspect]
     Dosage: SEE IMAGE
     Dates: start: 20050531, end: 20050816
  10. CISPLATIN [Suspect]
  11. BENADRYL [Concomitant]
  12. DECADRON [Concomitant]
  13. MAGNESIUM OXIDE [Concomitant]
  14. PROCRIT [Concomitant]
  15. ZANTAC [Concomitant]
  16. ZOFRAN [Concomitant]

REACTIONS (1)
  - HYPOMAGNESAEMIA [None]
